FAERS Safety Report 5485519-7 (Version None)
Quarter: 2007Q4

REPORT INFORMATION
  Report Type: 
  Country: None (occurrence: None)
  Receive Date: 20071010
  Receipt Date: 20071010
  Transmission Date: 20080405
  Serious: Yes (Other)
  Sender: FDA-Public Use
  Company Number: None

PATIENT
  Age: 52 Year
  Sex: Female
  Weight: 62.1428 kg

DRUGS (1)
  1. RIBAVIRIN [Suspect]
     Indication: HEPATITIS C
     Dosage: 400 MG BID PO
     Route: 048
     Dates: start: 20070720, end: 20070722

REACTIONS (10)
  - ANAEMIA [None]
  - ARTHRALGIA [None]
  - BURNING SENSATION [None]
  - DIZZINESS [None]
  - DYSPNOEA EXERTIONAL [None]
  - MUSCLE DISORDER [None]
  - NAUSEA [None]
  - SYNCOPE VASOVAGAL [None]
  - TUNNEL VISION [None]
  - WEIGHT DECREASED [None]
